FAERS Safety Report 8211564-4 (Version None)
Quarter: 2012Q1

REPORT INFORMATION
  Report Type: 
  Country: None (occurrence: None)
  Receive Date: 20120315
  Receipt Date: 20120309
  Transmission Date: 20120608
  Serious: Yes (Other)
  Sender: FDA-Public Use
  Company Number: GB-BAYER-2012-024016

PATIENT
  Sex: Female

DRUGS (2)
  1. CLOTRIMAZOLE [Suspect]
     Dosage: HAS BEEN USING EVERY DAY
     Dates: start: 20120307
  2. CLOTRIMAZOLE [Suspect]
     Dosage: UNK
     Route: 048
     Dates: start: 20120307

REACTIONS (1)
  - GENITAL HAEMORRHAGE [None]
